FAERS Safety Report 9413217 (Version 1)
Quarter: 2013Q3

REPORT INFORMATION
  Report Type: Spontaneous
  Country: AU (occurrence: AU)
  Receive Date: 20130722
  Receipt Date: 20130722
  Transmission Date: 20140515
  Serious: Yes (Hospitalization)
  Sender: FDA-Public Use
  Company Number: AU-009507513-1307AUS009133

PATIENT
  Age: 4 Year
  Sex: Female

DRUGS (2)
  1. LORATADINE [Suspect]
     Dosage: 20 MG, UNK
     Route: 048
     Dates: start: 20090511
  2. HYOSCINE [Suspect]
     Dosage: HALF A TAB
     Route: 048

REACTIONS (3)
  - Somnolence [Unknown]
  - Accidental overdose [Unknown]
  - Accidental exposure to product by child [Unknown]
